FAERS Safety Report 6619440-5 (Version None)
Quarter: 2010Q1

REPORT INFORMATION
  Report Type: 
  Country: None (occurrence: None)
  Receive Date: 20100224
  Receipt Date: 20100217
  Transmission Date: 20100710
  Serious: Yes (Other)
  Sender: FDA-Public Use
  Company Number: 2010022086

PATIENT
  Age: 26 Year
  Sex: Male

DRUGS (3)
  1. HAEMATE P (ANTIHEMOPHILIC FACTOR (HUMAN) VWF, DRIED, PASTEURIZED) [Suspect]
     Indication: HAEMOPHILIA A WITH ANTI FACTOR VIII
     Route: 042
     Dates: start: 20100102
  2. FEIBA [Concomitant]
  3. NOVOSEVEN /01034101/ (FACTOR VII (PROCONVERTIN )) [Concomitant]

REACTIONS (2)
  - HEPATITIS C [None]
  - TRANSMISSION OF AN INFECTIOUS AGENT VIA A MEDICINAL PRODUCT [None]
